FAERS Safety Report 8047277-1 (Version None)
Quarter: 2012Q1

REPORT INFORMATION
  Report Type: 
  Country: None (occurrence: None)
  Receive Date: 20120116
  Receipt Date: 20120110
  Transmission Date: 20120608
  Serious: Yes (Other)
  Sender: FDA-Public Use
  Company Number: JP-EISAI INC-E2090-01943-SPO-JP

PATIENT
  Age: 65 Year
  Sex: Female

DRUGS (11)
  1. URSO 250 [Concomitant]
  2. MUCOSTA [Concomitant]
  3. FAMOTIDINE [Concomitant]
  4. DEPAKENE [Suspect]
     Indication: PROPHYLAXIS
     Dosage: UNKNOWN
     Route: 048
     Dates: start: 20111215, end: 20120105
  5. CANDESARTAN CILEXETIL [Concomitant]
  6. PREDNISOLONE [Concomitant]
  7. MAGNESIUM SULFATE [Concomitant]
  8. ZONISAMIDE [Suspect]
     Indication: PROPHYLAXIS
     Dosage: UNKNOWN
     Route: 048
     Dates: start: 20120106
  9. MEILAX [Concomitant]
  10. PURSENNID [Concomitant]
  11. LOBU [Concomitant]

REACTIONS (1)
  - STEVENS-JOHNSON SYNDROME [None]
